FAERS Safety Report 14494108 (Version 1)
Quarter: 2018Q1

REPORT INFORMATION
  Report Type: Spontaneous
  Country: ES (occurrence: ES)
  Receive Date: 20180206
  Receipt Date: 20180206
  Transmission Date: 20180509
  Serious: Yes (Other)
  Sender: FDA-Public Use
  Company Number: ES-GILEAD-2018-0319036

PATIENT
  Age: 55 Year
  Sex: Male

DRUGS (6)
  1. ORFIDAL [Concomitant]
     Active Substance: LORAZEPAM
     Dosage: 1 MG, QD
     Route: 048
  2. EMTRICITABINE/TENOFOVIR DF [Concomitant]
     Active Substance: EMTRICITABINE
     Indication: HIV INFECTION
     Dosage: 1 DF, QD
     Route: 048
     Dates: start: 2010
  3. NORVIR [Concomitant]
     Active Substance: RITONAVIR
     Indication: HIV INFECTION
     Dosage: 100 MG, QD
     Route: 048
     Dates: start: 2010
  4. REYATAZ [Concomitant]
     Active Substance: ATAZANAVIR SULFATE
     Indication: HIV INFECTION
     Dosage: 300 MG, QD
     Route: 048
     Dates: start: 2010
  5. EPCLUSA [Suspect]
     Active Substance: SOFOSBUVIR\VELPATASVIR
     Indication: CHRONIC HEPATITIS C
     Dosage: 1 DF, QD
     Route: 048
     Dates: start: 20171123
  6. NASONEX [Concomitant]
     Active Substance: MOMETASONE FUROATE
     Dosage: 200 UG, QD
     Route: 045

REACTIONS (6)
  - Respiratory tract infection [Recovering/Resolving]
  - Anosmia [Recovering/Resolving]
  - Back pain [Recovering/Resolving]
  - Paraesthesia [Recovering/Resolving]
  - Ageusia [Recovering/Resolving]
  - Mucosal dryness [Recovering/Resolving]

NARRATIVE: CASE EVENT DATE: 20171125
